FAERS Safety Report 22018671 (Version 13)
Quarter: 2023Q4

REPORT INFORMATION
  Report Type: Other
  Country: US (occurrence: None)
  Receive Date: 20230222
  Receipt Date: 20231121
  Transmission Date: 20240110
  Serious: Yes (Hospitalization, Other)
  Sender: FDA-Public Use
  Company Number: US-ROCHE-2669640

PATIENT
  Age: 85 Year
  Sex: Female
  Weight: 36.774 kg

DRUGS (34)
  1. ESBRIET [Suspect]
     Active Substance: PIRFENIDONE
     Indication: Pulmonary fibrosis
     Dosage: TAKE 1 TABLET BY MOUTH 3 TIMES A DAY WITH MEALS FOR 7 DAYS?THEN, TAKE 2 TABLET(S) BY MOUTH 3 TIMES A
     Route: 048
  2. ESBRIET [Suspect]
     Active Substance: PIRFENIDONE
     Indication: Idiopathic pulmonary fibrosis
     Dosage: TAKE 3 TABLET(S) BY MOUTH 3 TIMES A DAY
     Route: 048
     Dates: start: 20200813
  3. ESBRIET [Suspect]
     Active Substance: PIRFENIDONE
     Indication: Diabetes insipidus
  4. ESBRIET [Suspect]
     Active Substance: PIRFENIDONE
     Indication: Meniere^s disease
  5. ESBRIET [Suspect]
     Active Substance: PIRFENIDONE
     Indication: Pulmonary fibrosis
  6. BUDESONIDE [Concomitant]
     Active Substance: BUDESONIDE
  7. MONTELUKAST SODIUM [Concomitant]
     Active Substance: MONTELUKAST SODIUM
  8. VITAMIN D3 [Concomitant]
     Active Substance: CHOLECALCIFEROL
  9. VITAMIN E [Concomitant]
     Active Substance: .ALPHA.-TOCOPHEROL
  10. GLUCOSAMINE [Concomitant]
     Active Substance: GLUCOSAMINE
  11. CITALOPRAM [Concomitant]
     Active Substance: CITALOPRAM HYDROBROMIDE
  12. PANTOPRAZOLE SODIUM [Concomitant]
     Active Substance: PANTOPRAZOLE SODIUM
  13. AMITRIPTYLINE [Concomitant]
     Active Substance: AMITRIPTYLINE
  14. KLOR-CON M20 [Concomitant]
     Active Substance: POTASSIUM CHLORIDE
  15. METOCLOPRAMIDE [Concomitant]
     Active Substance: METOCLOPRAMIDE
  16. CHOLESTYRAMINE [Concomitant]
     Active Substance: CHOLESTYRAMINE
  17. OXYBUTYNIN CHLORIDE [Concomitant]
     Active Substance: OXYBUTYNIN CHLORIDE
  18. ALENDRONATE SODIUM [Concomitant]
     Active Substance: ALENDRONATE SODIUM
  19. BUSPIRONE HCL [Concomitant]
     Active Substance: BUSPIRONE HYDROCHLORIDE
  20. LOPERAMIDE [Concomitant]
     Active Substance: LOPERAMIDE
  21. SUCRALFATE [Concomitant]
     Active Substance: SUCRALFATE
  22. NITROGLYCERIN [Concomitant]
     Active Substance: NITROGLYCERIN
  23. LEVOTHYROXINE SODIUM [Concomitant]
     Active Substance: LEVOTHYROXINE SODIUM
  24. FLECAINIDE ACETATE [Concomitant]
     Active Substance: FLECAINIDE ACETATE
  25. ACETAMINOPHEN [Concomitant]
     Active Substance: ACETAMINOPHEN
  26. DEXLANSOPRAZOLE [Concomitant]
     Active Substance: DEXLANSOPRAZOLE
  27. DICYCLOMINE HYDROCHLORIDE [Concomitant]
     Active Substance: DICYCLOMINE HYDROCHLORIDE
  28. IMODIUM A-D [Concomitant]
     Active Substance: LOPERAMIDE HYDROCHLORIDE
  29. RALOXIFENE [Concomitant]
     Active Substance: RALOXIFENE
  30. TRAZODONE HCL [Concomitant]
     Active Substance: TRAZODONE HYDROCHLORIDE
  31. BREO ELLIPTA [Concomitant]
     Active Substance: FLUTICASONE FUROATE\VILANTEROL TRIFENATATE
  32. SINGULAIR [Concomitant]
     Active Substance: MONTELUKAST SODIUM
  33. ALBUTEROL SULFATE [Concomitant]
     Active Substance: ALBUTEROL SULFATE
  34. DULERA [Concomitant]
     Active Substance: FORMOTEROL FUMARATE DIHYDRATE\MOMETASONE FUROATE

REACTIONS (29)
  - Diabetes mellitus [Unknown]
  - Diarrhoea [Unknown]
  - Deafness [Unknown]
  - Hiccups [Not Recovered/Not Resolved]
  - Chest pain [Unknown]
  - Headache [Not Recovered/Not Resolved]
  - Vomiting [Not Recovered/Not Resolved]
  - Dizziness [Unknown]
  - Ear pain [Unknown]
  - Vertigo [Unknown]
  - Treatment noncompliance [Unknown]
  - Abdominal discomfort [Unknown]
  - Fall [Unknown]
  - Somnolence [Unknown]
  - Blood glucose decreased [Unknown]
  - Gait disturbance [Unknown]
  - Gastrointestinal disorder [Unknown]
  - Fatigue [Unknown]
  - Dehydration [Unknown]
  - Weight increased [Unknown]
  - Bladder disorder [Unknown]
  - Dyspnoea [Unknown]
  - Impaired driving ability [Unknown]
  - Stress [Unknown]
  - Chronic obstructive pulmonary disease [Unknown]
  - Weight decreased [Not Recovered/Not Resolved]
  - Feeding disorder [Unknown]
  - Ill-defined disorder [Unknown]
  - Malaise [Unknown]
